FAERS Safety Report 6867006-4 (Version None)
Quarter: 2010Q2

REPORT INFORMATION
  Report Type: 
  Country: None (occurrence: None)
  Receive Date: 20100610
  Receipt Date: 20100122
  Transmission Date: 20101027
  Serious: No
  Sender: FDA-Public Use
  Company Number: 2010SP005059

PATIENT
  Sex: Female

DRUGS (3)
  1. SAPHRIS [Suspect]
     Indication: DRUG USE FOR UNKNOWN INDICATION
     Dosage: 5 MG;BID;SL
     Route: 060
     Dates: start: 20100108, end: 20100204
  2. SAPHRIS [Suspect]
     Indication: DRUG USE FOR UNKNOWN INDICATION
     Dosage: 5 MG;BID;SL
     Route: 060
     Dates: start: 20100218
  3. TOPAMAX [Concomitant]

REACTIONS (2)
  - AGEUSIA [None]
  - WEIGHT INCREASED [None]
